FAERS Safety Report 9874841 (Version 1)
Quarter: 2014Q1

REPORT INFORMATION
  Report Type: Other
  Country: US (occurrence: US)
  Receive Date: 20140206
  Receipt Date: 20140206
  Transmission Date: 20141002
  Serious: No
  Sender: FDA-Public Use
  Company Number: US-ACORDA-ACO_35942_2013

PATIENT
  Sex: Female
  Weight: 77.98 kg

DRUGS (4)
  1. AMPYRA [Suspect]
     Indication: MULTIPLE SCLEROSIS
     Dosage: 10 MG, BID
     Route: 048
     Dates: start: 201209, end: 201302
  2. OTHER THERAPEUTIC PRODUCTS [Concomitant]
     Indication: HYPERCHOLESTEROLAEMIA
     Dosage: UNK
     Route: 065
  3. NEXIUM [Concomitant]
     Indication: PRODUCT USED FOR UNKNOWN INDICATION
     Dosage: UNK
     Route: 065
  4. OTHER THERAPEUTIC PRODUCTS [Concomitant]
     Indication: PAIN
     Dosage: UNK
     Route: 065

REACTIONS (2)
  - Muscular weakness [Recovered/Resolved]
  - Fall [Recovered/Resolved]
